APPROVED DRUG PRODUCT: ISOSORBIDE DINITRATE
Active Ingredient: ISOSORBIDE DINITRATE
Strength: 5MG **Federal Register determination that product was not discontinued or withdrawn for safety or effectiveness reasons**
Dosage Form/Route: TABLET;SUBLINGUAL
Application: A086031 | Product #001
Applicant: WATSON LABORATORIES INC AN INDIRECT WHOLLY OWNED SUB OF TEVA PHARMACEUTICALS USA INC
Approved: Sep 29, 1987 | RLD: No | RS: No | Type: DISCN